FAERS Safety Report 5849295-8 (Version None)
Quarter: 2008Q3

REPORT INFORMATION
  Report Type: 
  Country: None (occurrence: None)
  Receive Date: 20080815
  Receipt Date: 20080812
  Transmission Date: 20090109
  Serious: Yes (Other)
  Sender: FDA-Public Use
  Company Number: TPA2008A01291

PATIENT
  Age: 60 Year
  Sex: Female

DRUGS (1)
  1. ACTOS [Suspect]
     Dosage: UNK.,UNKNOWN, PER ORAL
     Route: 048

REACTIONS (6)
  - BLOOD POTASSIUM INCREASED [None]
  - DYSSTASIA [None]
  - FATIGUE [None]
  - FEELING ABNORMAL [None]
  - MONOPLEGIA [None]
  - MUSCLE DISORDER [None]
